FAERS Safety Report 20809863 (Version 1)
Quarter: 2022Q2

REPORT INFORMATION
  Report Type: Spontaneous
  Country: US (occurrence: None)
  Receive Date: 20220510
  Receipt Date: 20220510
  Transmission Date: 20220721
  Serious: Yes (Hospitalization)
  Sender: FDA-Public Use
  Company Number: None

PATIENT
  Sex: Female

DRUGS (19)
  1. BENLYSTA [Suspect]
     Active Substance: BELIMUMAB
  2. ALBUTEROL AER HFA [Concomitant]
  3. ARNITY ELPT INH [Concomitant]
  4. AZITHROMYCIN [Concomitant]
     Active Substance: AZITHROMYCIN
  5. BENLYSTA [Concomitant]
     Active Substance: BELIMUMAB
  6. CLONIDINE [Concomitant]
  7. DULOXETINE HYDROCHLORIDE [Concomitant]
     Active Substance: DULOXETINE HYDROCHLORIDE
  8. GABAPENTIN [Concomitant]
     Active Substance: GABAPENTIN
  9. HYDROXYCHLOR TAB [Concomitant]
  10. LAMOTRIGINE [Concomitant]
     Active Substance: LAMOTRIGINE
  11. LINZESS CAP [Concomitant]
  12. LORAZEPAM TAB [Concomitant]
  13. MIDODRINE TAB [Concomitant]
  14. OMEPRAZOLE TAB [Concomitant]
  15. ONDANSETRON TAB [Concomitant]
  16. PROMETHAZINE [Concomitant]
     Active Substance: PROMETHAZINE HYDROCHLORIDE
  17. PROPRANOLOL CAP [Concomitant]
  18. PROPANOLOL ER [Concomitant]
  19. TRULANCE TAB [Concomitant]

REACTIONS (1)
  - Illness [None]
